FAERS Safety Report 6395780-2 (Version None)
Quarter: 2009Q4

REPORT INFORMATION
  Report Type: 
  Country: None (occurrence: None)
  Receive Date: 20091009
  Receipt Date: 20091001
  Transmission Date: 20100525
  Serious: Yes (Other)
  Sender: FDA-Public Use
  Company Number: US-GENENTECH-291412

PATIENT

DRUGS (1)
  1. AVASTIN [Suspect]
     Indication: CHOROIDAL NEOVASCULARISATION

REACTIONS (1)
  - INTRAOCULAR PRESSURE INCREASED [None]
